FAERS Safety Report 12508511 (Version 1)
Quarter: 2016Q2

REPORT INFORMATION
  Report Type: Spontaneous
  Country: NO (occurrence: NO)
  Receive Date: 20160629
  Receipt Date: 20160629
  Transmission Date: 20160815
  Serious: Yes (Other)
  Sender: FDA-Public Use
  Company Number: NO-AMGEN-NORSP2016081706

PATIENT
  Age: 64 Year
  Sex: Male

DRUGS (14)
  1. ZOMETA [Suspect]
     Active Substance: ZOLEDRONIC ACID
     Indication: PRODUCT USED FOR UNKNOWN INDICATION
     Dosage: UNK
     Route: 042
     Dates: start: 2004
  2. SOMAC [Concomitant]
     Active Substance: PANTOPRAZOLE SODIUM
     Dosage: 3 MG, UNK
     Route: 048
  3. PROCREN [Concomitant]
     Active Substance: LEUPROLIDE ACETATE
     Dosage: 11.25 MG, UNK
     Route: 051
  4. OXYNORM [Concomitant]
     Active Substance: OXYCODONE HYDROCHLORIDE
     Dosage: 10 MG, AS NECESSARY
  5. AFIPRAN [Concomitant]
     Active Substance: METOCLOPRAMIDE HYDROCHLORIDE
     Dosage: UNK MG, UNK
  6. XGEVA [Suspect]
     Active Substance: DENOSUMAB
     Indication: PRODUCT USED FOR UNKNOWN INDICATION
     Dosage: 120 MG/1.7 ML
     Route: 058
     Dates: start: 201211
  7. LAXOBERAL [Concomitant]
     Active Substance: SODIUM PICOSULFATE
     Dosage: 10 DROP
     Route: 048
  8. MEDROL [Concomitant]
     Active Substance: METHYLPREDNISOLONE
     Dosage: 16 MG, UNK
     Route: 048
  9. ONDANSETRON [Concomitant]
     Active Substance: ONDANSETRON
     Dosage: 8 MG, UNK
  10. DUPHALAC [Concomitant]
     Active Substance: LACTULOSE
     Dosage: 15 UNK, UNK
     Route: 048
  11. CALCIGRAN [Concomitant]
     Route: 048
  12. LOSARTAN. [Concomitant]
     Active Substance: LOSARTAN
  13. PARACET [Concomitant]
     Active Substance: ACETAMINOPHEN
     Dosage: 2 G, UNK
     Route: 048
  14. OXYCONTIN [Concomitant]
     Active Substance: OXYCODONE HYDROCHLORIDE
     Dosage: 40 MG, UNK
     Route: 048

REACTIONS (2)
  - Osteonecrosis of jaw [Unknown]
  - Osteitis [Unknown]

NARRATIVE: CASE EVENT DATE: 20140411
